FAERS Safety Report 10386812 (Version 1)
Quarter: 2014Q1

REPORT INFORMATION
  Report Type: Spontaneous
  Country: US (occurrence: None)
  Receive Date: 20140306
  Receipt Date: 20140306
  Transmission Date: 20141002
  Serious: Yes (Hospitalization, Other)
  Sender: FDA-Public Use
  Company Number: 163-21880-13062765

PATIENT
  Age: 70 Year
  Sex: Male
  Weight: 80.3 kg

DRUGS (13)
  1. REVLIMID (LENALIDOMIDE) (25 MILLIGRAM, CAPSULES) [Suspect]
     Indication: PLASMA CELL MYELOMA
     Route: 048
     Dates: start: 20111228, end: 2012
  2. FINASTERIDE (FINASTERIDE) [Concomitant]
  3. KLOR-CON M20 (POTASSIUM CHLORIDE) [Concomitant]
  4. FLOMAX (TAMSULOSIN HYDROCHLORIDE) [Concomitant]
  5. OXYCODONE HCL (OXYCODONE HYDROCHLORIDE) [Concomitant]
  6. WARFARIN SODIUM (WARFARIN SODIUM) [Concomitant]
  7. LOVENOX (HEPARIN - FRACTION, SODIUM SALT) [Concomitant]
  8. LEVOFLOXACIN (LEVOFLOXACIN) [Concomitant]
  9. ADVAIR DISKUS [Concomitant]
  10. LIDODERM (LIDOCAINE) [Concomitant]
  11. MUCINEX D [Concomitant]
  12. IMODIUM ADVANCED (IMODIUM ADVANCED) [Concomitant]
  13. VITAMIN D2 (ERGOCALCIFEROL) [Concomitant]

REACTIONS (1)
  - Deep vein thrombosis [None]
